FAERS Safety Report 16303680 (Version 1)
Quarter: 2019Q2

REPORT INFORMATION
  Report Type: Spontaneous
  Country: US (occurrence: US)
  Receive Date: 20190513
  Receipt Date: 20190513
  Transmission Date: 20190711
  Serious: No
  Sender: FDA-Public Use
  Company Number: US-009507513-1904USA013087

PATIENT
  Age: 66 Year
  Sex: Female

DRUGS (2)
  1. SYNTHROID [Concomitant]
     Active Substance: LEVOTHYROXINE SODIUM
  2. DULERA [Suspect]
     Active Substance: FORMOTEROL FUMARATE DIHYDRATE\MOMETASONE FUROATE
     Indication: CHRONIC OBSTRUCTIVE PULMONARY DISEASE
     Dosage: 200MCG/5MCG, 2 PUFFS IN THE MORNING AND 2 PUFFS IN THE EVENING
     Route: 055
     Dates: start: 2016

REACTIONS (6)
  - Expired product administered [Unknown]
  - Poor quality device used [Unknown]
  - Product dose omission [Unknown]
  - Product quality issue [Unknown]
  - Product use in unapproved indication [Unknown]
  - Chest discomfort [Recovered/Resolved]

NARRATIVE: CASE EVENT DATE: 2016
